FAERS Safety Report 5506611-4 (Version None)
Quarter: 2007Q4

REPORT INFORMATION
  Report Type: 
  Country: None (occurrence: None)
  Receive Date: 20071105
  Receipt Date: 20071025
  Transmission Date: 20080405
  Serious: Yes (Hospitalization, Other)
  Sender: FDA-Public Use
  Company Number: FR-ROCHE-505167

PATIENT
  Age: 71 Year
  Sex: Female
  Weight: 65 kg

DRUGS (6)
  1. BONIVA [Suspect]
     Indication: OSTEOPOROSIS
     Route: 048
     Dates: start: 20070122, end: 20070601
  2. LOPERAMIDE HCL [Concomitant]
     Indication: DIARRHOEA
     Dosage: DOSE 6 DOSES EVERYDAY
  3. SPIRONOLACTONE [Concomitant]
  4. OLMETEC [Concomitant]
  5. AERIUS [Concomitant]
  6. LAMISIL [Concomitant]

REACTIONS (3)
  - COLITIS [None]
  - GASTRITIS [None]
  - GOITRE [None]
